FAERS Safety Report 7163977-X (Version None)
Quarter: 2010Q4

REPORT INFORMATION
  Report Type: 
  Country: None (occurrence: None)
  Receive Date: 20101215
  Receipt Date: 20101203
  Transmission Date: 20110411
  Serious: Yes (Hospitalization)
  Sender: FDA-Public Use
  Company Number: A0789077A

PATIENT
  Age: 53 Year
  Sex: Male
  Weight: 61.4 kg

DRUGS (1)
  1. AVANDIA [Suspect]
     Dosage: 8MG TWICE PER DAY
     Route: 048
     Dates: start: 20040709, end: 20070721

REACTIONS (1)
  - MYOCARDIAL INFARCTION [None]
